FAERS Safety Report 10628554 (Version 2)
Quarter: 2014Q4

REPORT INFORMATION
  Report Type: Spontaneous
  Country: US (occurrence: US)
  Receive Date: 20141205
  Receipt Date: 20141205
  Transmission Date: 20150529
  Serious: No
  Sender: FDA-Public Use
  Company Number: US-BRISTOL-MYERS SQUIBB COMPANY-21451034

PATIENT
  Age: 67 Year
  Sex: Female
  Weight: 97.5 kg

DRUGS (9)
  1. LEVOTHYROXINE [Concomitant]
     Active Substance: LEVOTHYROXINE
  2. NOVOLOG [Concomitant]
     Active Substance: INSULIN ASPART
  3. WARFARIN SODIUM. [Suspect]
     Active Substance: WARFARIN SODIUM
  4. BYDUREON [Suspect]
     Active Substance: EXENATIDE
     Indication: TYPE 2 DIABETES MELLITUS
     Route: 058
     Dates: start: 20140826, end: 20140929
  5. LANTUS [Concomitant]
     Active Substance: INSULIN GLARGINE
  6. LASIX [Concomitant]
     Active Substance: FUROSEMIDE
  7. LISINOPRIL. [Concomitant]
     Active Substance: LISINOPRIL
  8. METOPROLOL [Concomitant]
     Active Substance: METOPROLOL
  9. CLOPIDOGREL BISULFATE. [Concomitant]
     Active Substance: CLOPIDOGREL BISULFATE

REACTIONS (2)
  - Injection site pruritus [Recovering/Resolving]
  - Injection site nodule [Recovering/Resolving]

NARRATIVE: CASE EVENT DATE: 20140922
